FAERS Safety Report 9030448 (Version 1)
Quarter: 2013Q1

REPORT INFORMATION
  Report Type: Spontaneous
  Country: IT (occurrence: IT)
  Receive Date: 20130122
  Receipt Date: 20130122
  Transmission Date: 20140127
  Serious: Yes (Death, Life-Threatening)
  Sender: FDA-Public Use
  Company Number: IT-GENZYME-POMP-1002725

PATIENT
  Age: 18 Month
  Sex: Female

DRUGS (1)
  1. MYOZYME [Suspect]
     Indication: GLYCOGEN STORAGE DISEASE TYPE II
     Dosage: 20 MG/KG, UNK
     Route: 042
     Dates: end: 20121220

REACTIONS (4)
  - Death [Fatal]
  - Pulmonary congestion [Unknown]
  - Pneumonitis chemical [Unknown]
  - Device deployment issue [Unknown]
